FAERS Safety Report 7988717-3 (Version None)
Quarter: 2011Q4

REPORT INFORMATION
  Report Type: 
  Country: None (occurrence: None)
  Receive Date: 20111218
  Receipt Date: 20111205
  Transmission Date: 20120403
  Serious: Yes (Hospitalization)
  Sender: FDA-Public Use
  Company Number: US-MYLANLABS-2011S1022290

PATIENT
  Age: 78 Year
  Sex: Male
  Weight: 70 kg

DRUGS (22)
  1. AMITRIPTYLINE HCL [Concomitant]
     Indication: INSOMNIA
     Route: 048
     Dates: start: 19790101
  2. RABEPRAZOLE SODIUM [Concomitant]
     Indication: GASTROOESOPHAGEAL REFLUX DISEASE
     Route: 048
     Dates: start: 20030101
  3. ADVAIR DISKUS 100/50 [Concomitant]
     Indication: ASTHMA
     Dosage: 250/50 MCG
     Route: 055
     Dates: start: 20070101
  4. ASPIRIN [Concomitant]
     Indication: CARDIOVASCULAR EVENT PROPHYLAXIS
     Route: 048
     Dates: start: 20100101
  5. HYDRAZIDE /00022001/ [Concomitant]
     Indication: HYPERTENSION
     Route: 048
     Dates: start: 20090101
  6. METFORMIN HCL [Concomitant]
     Indication: TYPE 2 DIABETES MELLITUS
     Dosage: 500 MG TABLETS
     Route: 048
     Dates: start: 19970101
  7. CALCIUM [Concomitant]
     Indication: MEDICAL DIET
     Dosage: TABLETS
     Route: 048
     Dates: start: 20020101
  8. ACTOS [Concomitant]
     Indication: TYPE 2 DIABETES MELLITUS
     Route: 048
     Dates: start: 20070101
  9. VENTOLIN [Concomitant]
     Indication: ASTHMA
     Route: 055
     Dates: start: 20030101
  10. FLOVENT [Concomitant]
     Indication: CHRONIC OBSTRUCTIVE PULMONARY DISEASE
  11. UREMOL [Concomitant]
     Indication: DRY SKIN
     Route: 061
     Dates: start: 20060101
  12. FERROUS GLUCONATE [Concomitant]
     Indication: IRON DEFICIENCY
     Dosage: TABLETS
     Route: 048
     Dates: start: 20030101
  13. PLAVIX [Concomitant]
     Indication: THROMBOSIS PROPHYLAXIS
     Route: 048
     Dates: start: 20110809
  14. INVESTIGATIONAL DRUG [Suspect]
     Indication: IRRITABLE BOWEL SYNDROME
     Route: 048
     Dates: start: 20100309
  15. GLYBURIDE [Suspect]
     Indication: TYPE 2 DIABETES MELLITUS
     Route: 048
     Dates: start: 20050101, end: 20110821
  16. CARDIZEM [Concomitant]
     Indication: ANGINA PECTORIS
     Route: 048
     Dates: start: 20110725
  17. VITAMIN D [Concomitant]
     Indication: MEDICAL DIET
     Dosage: TABLETS
     Route: 048
     Dates: start: 20020101
  18. VASOTEC [Concomitant]
     Indication: HYPERTENSION
     Route: 048
     Dates: start: 19990101
  19. GLUCOSAMINE [Concomitant]
     Dosage: TABLETS
     Dates: start: 20010101
  20. ANDRIOL [Concomitant]
     Indication: BLOOD TESTOSTERONE DECREASED
     Route: 048
     Dates: start: 20000101
  21. ZOCOR [Concomitant]
     Indication: HYPERLIPIDAEMIA
     Route: 048
     Dates: start: 19990101
  22. ACTONEL [Concomitant]
     Indication: OSTEOPOROSIS
     Dates: start: 20110201

REACTIONS (3)
  - SYNCOPE [None]
  - HYPOGLYCAEMIA [None]
  - OSTEOPOROSIS [None]
